FAERS Safety Report 14680326 (Version 3)
Quarter: 2018Q2

REPORT INFORMATION
  Report Type: Spontaneous
  Country: US (occurrence: US)
  Receive Date: 20180326
  Receipt Date: 20180620
  Transmission Date: 20180711
  Serious: Yes (Death, Other)
  Sender: FDA-Public Use
  Company Number: US-ASTELLAS-2018US014560

PATIENT
  Sex: Male

DRUGS (2)
  1. XTANDI [Suspect]
     Active Substance: ENZALUTAMIDE
     Indication: PROSTATE CANCER
     Route: 048
     Dates: start: 201802, end: 201803
  2. CARDIOFIL [Concomitant]
     Indication: BLOOD PRESSURE ABNORMAL
     Dosage: UNK UNK, UNKNOWN FREQ. (REPORTED AS CARDIOPHIL)
     Route: 065

REACTIONS (10)
  - Haemoglobin decreased [Unknown]
  - Loss of consciousness [Unknown]
  - White blood cell count decreased [Unknown]
  - Blood pressure decreased [Recovering/Resolving]
  - Platelet count decreased [Unknown]
  - Visual impairment [Recovering/Resolving]
  - Posterior reversible encephalopathy syndrome [Recovering/Resolving]
  - Dysphagia [Unknown]
  - Death [Fatal]
  - Red blood cell count decreased [Unknown]

NARRATIVE: CASE EVENT DATE: 20180317
